FAERS Safety Report 20447505 (Version 1)
Quarter: 2022Q1

REPORT INFORMATION
  Report Type: Report from Study
  Country: US (occurrence: US)
  Receive Date: 20220209
  Receipt Date: 20220209
  Transmission Date: 20220423
  Serious: No
  Sender: FDA-Public Use
  Company Number: US-HRARD-2021000039

PATIENT
  Age: 29 Year
  Sex: Female

DRUGS (5)
  1. LYSODREN [Suspect]
     Active Substance: MITOTANE
     Dosage: 02 TABLETS BID?DISCONTINUED AT UNSPECIFIED DATE
     Route: 048
     Dates: start: 20201202
  2. Prochlorpromazine 5 mg [Concomitant]
  3. ONDANSETRON [Concomitant]
     Active Substance: ONDANSETRON
  4. Hydrocortisone 10 mg [Concomitant]
  5. METFORMIN [Concomitant]
     Active Substance: METFORMIN HYDROCHLORIDE

REACTIONS (3)
  - Nausea [Recovered/Resolved]
  - Diarrhoea [Recovered/Resolved]
  - Off label use [Recovered/Resolved]

NARRATIVE: CASE EVENT DATE: 20201202
